FAERS Safety Report 7138216-6 (Version None)
Quarter: 2010Q4

REPORT INFORMATION
  Report Type: 
  Country: None (occurrence: None)
  Receive Date: 20101206
  Receipt Date: 20101130
  Transmission Date: 20110411
  Serious: Yes (Hospitalization)
  Sender: FDA-Public Use
  Company Number: FR-ROCHE-734168

PATIENT
  Sex: Male
  Weight: 65 kg

DRUGS (2)
  1. BEVACIZUMAB [Suspect]
     Indication: GLIOBLASTOMA
     Dosage: LAST DOSE BEFORE SAE 3 NOV 2010,CUMULATIVE DOSE : 650 MG,CYCLE 1,THERAPY CYCLE POSTPONED FOR 1 WEEK
     Route: 042
     Dates: start: 20100930
  2. IRINOTECAN HCL [Suspect]
     Indication: GLIOBLASTOMA
     Dosage: LAST DOSE PRIOR TO SAE: 30 SEP 2010, CUMULATIVE DOSE: 220 MG, CYCLE 1
     Route: 042
     Dates: start: 20100930

REACTIONS (1)
  - MUCOSAL INFLAMMATION [None]
